FAERS Safety Report 6509831-5 (Version None)
Quarter: 2009Q4

REPORT INFORMATION
  Report Type: 
  Country: None (occurrence: None)
  Receive Date: 20091222
  Receipt Date: 20091110
  Transmission Date: 20100525
  Serious: No
  Sender: FDA-Public Use
  Company Number: US-ABBOTT-09P-163-0607964-00

PATIENT
  Age: 6 Year
  Sex: Male
  Weight: 19.976 kg

DRUGS (6)
  1. OMNICEF [Suspect]
     Indication: UPPER RESPIRATORY TRACT INFECTION
     Dosage: 250MG /5ML
     Route: 048
     Dates: start: 20091031, end: 20091107
  2. OMNICEF [Suspect]
     Indication: PNEUMONIA
  3. ZITHROMAX [Concomitant]
     Indication: PNEUMONIA
     Dates: start: 20091108
  4. ZITHROMAX [Concomitant]
     Indication: UPPER RESPIRATORY TRACT INFECTION
  5. PREDNISOLONE [Concomitant]
     Indication: UPPER RESPIRATORY TRACT INFECTION
     Dates: start: 20091108
  6. PREDNISOLONE [Concomitant]
     Indication: PNEUMONIA

REACTIONS (7)
  - DIARRHOEA [None]
  - DRUG PRESCRIBING ERROR [None]
  - FATIGUE [None]
  - INCORRECT DRUG DOSAGE FORM ADMINISTERED [None]
  - PYREXIA [None]
  - SKIN DISCOLOURATION [None]
  - VOMITING [None]
